FAERS Safety Report 15616059 (Version 1)
Quarter: 2018Q4

REPORT INFORMATION
  Report Type: Spontaneous
  Country: CO (occurrence: CO)
  Receive Date: 20181114
  Receipt Date: 20181114
  Transmission Date: 20190205
  Serious: Yes (Other)
  Sender: FDA-Public Use
  Company Number: CO-BAYER-2018-207771

PATIENT
  Age: 33 Year
  Sex: Female

DRUGS (5)
  1. ACETYLSALICYLIC ACID({=100 MG) [Suspect]
     Active Substance: ASPIRIN
     Dosage: UNK
  2. PARACETAMOL [Suspect]
     Active Substance: ACETAMINOPHEN
     Dosage: 1000 MG, UNK
  3. IBUPROFEN. [Suspect]
     Active Substance: IBUPROFEN
     Dosage: UNK
  4. NIMESULIDE [Concomitant]
     Active Substance: NIMESULIDE
  5. ETORICOXIB. [Concomitant]
     Active Substance: ETORICOXIB

REACTIONS (7)
  - Nasal pruritus [None]
  - Nasal congestion [None]
  - Rhinorrhoea [None]
  - Sneezing [None]
  - Aspirin-exacerbated respiratory disease [None]
  - Cough [None]
  - Anosmia [None]
